FAERS Safety Report 8374254-3 (Version None)
Quarter: 2012Q2

REPORT INFORMATION
  Report Type: 
  Country: None (occurrence: None)
  Receive Date: 20120518
  Receipt Date: 20120518
  Transmission Date: 20120825
  Serious: Yes (Other)
  Sender: FDA-Public Use
  Company Number: None

PATIENT
  Age: 55 Year
  Sex: Female
  Weight: 84.369 kg

DRUGS (1)
  1. AZITHROMYCIN [Suspect]
     Indication: SINUSITIS
     Dosage: 2 FIRST DAY, 1 DAILY DAILY FOR 5 DAYS PO
     Route: 048
     Dates: start: 20120427, end: 20120501

REACTIONS (1)
  - EXTRASYSTOLES [None]
